FAERS Safety Report 4894555-0 (Version None)
Quarter: 2006Q1

REPORT INFORMATION
  Report Type: 
  Country: None (occurrence: None)
  Receive Date: 20060127
  Receipt Date: 20060116
  Transmission Date: 20060701
  Serious: Yes (Other)
  Sender: FDA-Public Use
  Company Number: GB-MERCK-0601GBR00084

PATIENT
  Age: 45 Year
  Sex: Male
  Weight: 83 kg

DRUGS (1)
  1. ZETIA [Suspect]
     Indication: HYPERCHOLESTEROLAEMIA
     Route: 048
     Dates: start: 20050928, end: 20060112

REACTIONS (1)
  - BLOOD CREATININE INCREASED [None]
